FAERS Safety Report 4785326-4 (Version None)
Quarter: 2005Q3

REPORT INFORMATION
  Report Type: 
  Country: None (occurrence: None)
  Receive Date: 20050929
  Receipt Date: 20050916
  Transmission Date: 20060218
  Serious: Yes (Hospitalization, Other)
  Sender: FDA-Public Use
  Company Number: 2005130569

PATIENT
  Age: 57 Year
  Sex: Female

DRUGS (6)
  1. AMLODIPINE [Suspect]
     Indication: HYPERTENSION
     Dosage: 5 MG (DAILY), ORAL
     Route: 048
     Dates: start: 20050224
  2. CLOZAPINE [Suspect]
     Indication: ILL-DEFINED DISORDER
     Dosage: 375 MG (DAILY), ORAL
     Route: 048
     Dates: start: 20050321, end: 20050831
  3. VALPROIC ACID [Suspect]
     Indication: MOOD SWINGS
     Dosage: 900 MG (DAILY), ORAL
     Route: 048
  4. AMISULPRIDE (AMISULPRIDE) [Concomitant]
  5. ACETAMINOPHEN [Concomitant]
  6. CODEINE (CODEINE) [Concomitant]

REACTIONS (2)
  - MOOD SWINGS [None]
  - NEUTROPHIL COUNT DECREASED [None]
